FAERS Safety Report 10553445 (Version 1)
Quarter: 2014Q4

REPORT INFORMATION
  Report Type: Spontaneous
  Country: US (occurrence: None)
  Receive Date: 20141028
  Receipt Date: 20141028
  Transmission Date: 20150529
  Serious: Yes (Hospitalization)
  Sender: FDA-Public Use
  Company Number: None

PATIENT
  Age: 29 Year
  Sex: Male
  Weight: 99.1 kg

DRUGS (5)
  1. CEFAZOLIN [Suspect]
     Active Substance: CEFAZOLIN
     Indication: SURGERY
     Route: 042
     Dates: start: 20120509, end: 20120509
  2. CEFAZOLIN [Suspect]
     Active Substance: CEFAZOLIN
     Indication: PREOPERATIVE CARE
     Route: 042
     Dates: start: 20120509, end: 20120509
  3. ROCURONIUM BROMIDE. [Suspect]
     Active Substance: ROCURONIUM BROMIDE
     Indication: SURGERY
     Route: 042
     Dates: start: 20120509, end: 20120509
  4. ROCURONIUM BROMIDE. [Suspect]
     Active Substance: ROCURONIUM BROMIDE
     Indication: ENDOTRACHEAL INTUBATION
     Route: 042
     Dates: start: 20120509, end: 20120509
  5. ROCURONIUM BROMIDE. [Suspect]
     Active Substance: ROCURONIUM BROMIDE
     Route: 042
     Dates: start: 20120509, end: 20120509

REACTIONS (3)
  - Rash [None]
  - Angioedema [None]
  - Urticaria [None]

NARRATIVE: CASE EVENT DATE: 20120509
